FAERS Safety Report 23810574 (Version 1)
Quarter: 2024Q2

REPORT INFORMATION
  Report Type: Spontaneous
  Country: US (occurrence: US)
  Receive Date: 20240502
  Receipt Date: 20240502
  Transmission Date: 20240716
  Serious: Yes (Death, Other)
  Sender: FDA-Public Use
  Company Number: US-SANDOZ-SDZ2024US043954

PATIENT
  Age: 63 Year
  Sex: Female

DRUGS (3)
  1. HYDROCHLOROTHIAZIDE\LISINOPRIL [Suspect]
     Active Substance: HYDROCHLOROTHIAZIDE\LISINOPRIL
     Indication: Product used for unknown indication
     Dosage: UNK
     Route: 065
     Dates: start: 202212
  2. METOPROLOL [Suspect]
     Active Substance: METOPROLOL
     Indication: Product used for unknown indication
     Dosage: UNK
     Route: 065
     Dates: start: 1966
  3. SPIRONOLACTONE [Suspect]
     Active Substance: SPIRONOLACTONE
     Indication: Product used for unknown indication
     Dosage: UNK
     Route: 065

REACTIONS (10)
  - Cardiac arrest [Fatal]
  - Ascites [Unknown]
  - Mobility decreased [Recovering/Resolving]
  - Sleep disorder [Recovered/Resolved]
  - Glomerular filtration rate decreased [Unknown]
  - Fluid retention [Unknown]
  - Dyspnoea [Recovered/Resolved]
  - Oedema [Recovered/Resolved]
  - Constipation [Unknown]
  - Influenza [Unknown]
